FAERS Safety Report 10861271 (Version 1)
Quarter: 2015Q1

REPORT INFORMATION
  Report Type: Spontaneous
  Country: US (occurrence: None)
  Receive Date: 20150218
  Receipt Date: 20150218
  Transmission Date: 20150721
  Serious: Yes (Hospitalization)
  Sender: FDA-Public Use
  Company Number: None

PATIENT
  Age: 62 Year
  Sex: Female
  Weight: 64 kg

DRUGS (3)
  1. VANCOMYCIN 10 GRAM APP PHARMACEUTICAL [Suspect]
     Active Substance: VANCOMYCIN
     Indication: DIABETIC FOOT INFECTION
     Dosage: 1GIVG12H X 2 DAYS, 1.25GIVQ12HX2DAYS
     Dates: start: 20150121, end: 20150125
  2. ZOSYN [Concomitant]
     Active Substance: PIPERACILLIN SODIUM\TAZOBACTAM SODIUM
  3. LISINOPRIL. [Concomitant]
     Active Substance: LISINOPRIL

REACTIONS (1)
  - Acute kidney injury [None]

NARRATIVE: CASE EVENT DATE: 20150125
